FAERS Safety Report 5004811-3 (Version None)
Quarter: 2006Q2

REPORT INFORMATION
  Report Type: 
  Country: None (occurrence: None)
  Receive Date: 20060517
  Receipt Date: 20060130
  Transmission Date: 20061013
  Serious: Yes (Hospitalization)
  Sender: FDA-Public Use
  Company Number: US-MERCK-0602USA00095

PATIENT
  Age: 70 Year
  Sex: Male

DRUGS (1)
  1. VIOXX [Suspect]
     Route: 048
     Dates: start: 20010313, end: 20040930

REACTIONS (11)
  - ATRIAL FIBRILLATION [None]
  - BENIGN PROSTATIC HYPERPLASIA [None]
  - CORONARY ARTERY DISEASE [None]
  - CORONARY ARTERY OCCLUSION [None]
  - CORONARY ARTERY STENOSIS [None]
  - MYALGIA [None]
  - MYOCARDIAL INFARCTION [None]
  - POLYMYALGIA RHEUMATICA [None]
  - PROSTATIC SPECIFIC ANTIGEN INCREASED [None]
  - PROSTATITIS [None]
  - URINARY TRACT INFECTION [None]
